FAERS Safety Report 19317499 (Version 1)
Quarter: 2021Q2

REPORT INFORMATION
  Report Type: Spontaneous
  Country: US (occurrence: US)
  Receive Date: 20210527
  Receipt Date: 20210527
  Transmission Date: 20210717
  Serious: No
  Sender: FDA-Public Use
  Company Number: US-ASTRAZENECA-2021A369608

PATIENT
  Sex: Female

DRUGS (2)
  1. BYDUREON [Suspect]
     Active Substance: EXENATIDE
     Dosage: 2.0MG UNKNOWN
     Route: 065
  2. BYDUREON BCISE [Suspect]
     Active Substance: EXENATIDE
     Route: 065

REACTIONS (8)
  - Incorrect dose administered by device [Unknown]
  - Hypoacusis [Unknown]
  - Injection site extravasation [Unknown]
  - Device malfunction [Unknown]
  - Injection site haemorrhage [Unknown]
  - Eye disorder [Unknown]
  - Tremor [Unknown]
  - Intentional device misuse [Unknown]
